FAERS Safety Report 8801485 (Version 2)
Quarter: 2012Q4

REPORT INFORMATION
  Report Type: Report from Study
  Country: DE (occurrence: DE)
  Receive Date: 20120921
  Receipt Date: 20121115
  Transmission Date: 20130627
  Serious: Yes (Other)
  Sender: FDA-Public Use
  Company Number: DE-ROCHE-1131633

PATIENT
  Sex: Female
  Weight: 49.5 kg

DRUGS (3)
  1. METHOXY POLYETHYLENE GLYCOL-EPOETIN BETA [Suspect]
     Indication: NEPHROGENIC ANAEMIA
     Route: 042
  2. METHOXY POLYETHYLENE GLYCOL-EPOETIN BETA [Suspect]
     Route: 042
     Dates: start: 20110319
  3. EPOETIN BETA [Suspect]
     Indication: PRODUCT USED FOR UNKNOWN INDICATION
     Route: 042
     Dates: start: 20081121, end: 20100905

REACTIONS (1)
  - Haemoglobin decreased [Recovered/Resolved]
